FAERS Safety Report 19118394 (Version 1)
Quarter: 2021Q2

REPORT INFORMATION
  Report Type: Spontaneous
  Country: TR (occurrence: TR)
  Receive Date: 20210409
  Receipt Date: 20210409
  Transmission Date: 20210717
  Serious: Yes (Death)
  Sender: FDA-Public Use
  Company Number: TR-FRESENIUS KABI-FK202103619

PATIENT
  Age: 72 Year
  Sex: Male

DRUGS (10)
  1. BORTEZOMIB (MANUFACTURER UNKNOWN) [Suspect]
     Active Substance: BORTEZOMIB
     Indication: PLASMA CELL MYELOMA
     Dosage: 3RD CYCLE
     Route: 065
     Dates: start: 201812
  2. METOPROLOL. [Concomitant]
     Active Substance: METOPROLOL
     Indication: ATRIAL FIBRILLATION
     Route: 065
  3. ZOLEDRONIC ACID [Concomitant]
     Active Substance: ZOLEDRONIC ACID
     Indication: PLASMA CELL MYELOMA
     Route: 065
     Dates: start: 201812
  4. DEXAMETHASONE. [Concomitant]
     Active Substance: DEXAMETHASONE
     Route: 065
  5. LENALIDOMIDE [Concomitant]
     Active Substance: LENALIDOMIDE
     Route: 065
  6. DEXAMETHASONE. [Concomitant]
     Active Substance: DEXAMETHASONE
     Indication: PLASMA CELL MYELOMA
     Dosage: 3RD CYCLE
     Route: 065
     Dates: start: 201812
  7. APIXABAN [Concomitant]
     Active Substance: APIXABAN
     Indication: DEEP VEIN THROMBOSIS
     Route: 065
  8. BORTEZOMIB (MANUFACTURER UNKNOWN) [Suspect]
     Active Substance: BORTEZOMIB
     Route: 065
  9. ZOLEDRONIC ACID [Concomitant]
     Active Substance: ZOLEDRONIC ACID
     Route: 065
  10. LENALIDOMIDE [Concomitant]
     Active Substance: LENALIDOMIDE
     Indication: PLASMA CELL MYELOMA
     Dosage: 3RD CYCLE
     Route: 065
     Dates: start: 201812

REACTIONS (1)
  - Pulmonary toxicity [Fatal]
